FAERS Safety Report 18367446 (Version 1)
Quarter: 2020Q4

REPORT INFORMATION
  Report Type: Other
  Country: US (occurrence: US)
  Receive Date: 20201009
  Receipt Date: 20201009
  Transmission Date: 20210114
  Serious: Yes (Other)
  Sender: FDA-Public Use
  Company Number: US-ABBVIE-20K-163-3602783-00

PATIENT
  Age: 1 Year

DRUGS (1)
  1. IBRUTINIB [Suspect]
     Active Substance: IBRUTINIB
     Indication: CHRONIC GRAFT VERSUS HOST DISEASE
     Route: 048

REACTIONS (4)
  - Alanine aminotransferase increased [Unknown]
  - Neutropenia [Recovered/Resolved]
  - Off label use [Unknown]
  - Product use issue [Unknown]
